FAERS Safety Report 12421773 (Version 3)
Quarter: 2016Q3

REPORT INFORMATION
  Report Type: Spontaneous
  Country: US (occurrence: US)
  Receive Date: 20160531
  Receipt Date: 20160830
  Transmission Date: 20161109
  Serious: No
  Sender: FDA-Public Use
  Company Number: US-PFIZER INC-2016253781

PATIENT
  Age: 55 Year
  Sex: Female
  Weight: 65.77 kg

DRUGS (1)
  1. LYRICA [Suspect]
     Active Substance: PREGABALIN
     Dosage: 1 DF, UNK (ONLY TOOK ONE PILL YESTERDAY)

REACTIONS (7)
  - Insomnia [Unknown]
  - Intentional product misuse [Unknown]
  - Mobility decreased [Unknown]
  - Neuralgia [Unknown]
  - Burning sensation [Unknown]
  - Pain [Unknown]
  - Somnolence [Unknown]
